FAERS Safety Report 25042123 (Version 4)
Quarter: 2025Q3

REPORT INFORMATION
  Report Type: Report from Study
  Country: JP (occurrence: JP)
  Receive Date: 20250305
  Receipt Date: 20250915
  Transmission Date: 20251021
  Serious: Yes (Other)
  Sender: UCB
  Company Number: JP-UCBJ-CD202502710UCBPHAPROD

PATIENT
  Age: 15 Year
  Sex: Male

DRUGS (4)
  1. FENFLURAMINE HYDROCHLORIDE [Suspect]
     Active Substance: FENFLURAMINE HYDROCHLORIDE
     Indication: Lennox-Gastaut syndrome
     Dosage: 5 MILLILITER, ONCE DAILY (QD)
     Route: 048
     Dates: start: 20240930, end: 20250410
  2. LEVETIRACETAM [Concomitant]
     Active Substance: LEVETIRACETAM
     Indication: Lennox-Gastaut syndrome
     Route: 048
  3. TEGRETOL [Concomitant]
     Active Substance: CARBAMAZEPINE
     Indication: Lennox-Gastaut syndrome
     Route: 048
  4. DIAZEPAM [Concomitant]
     Active Substance: DIAZEPAM
     Indication: Lennox-Gastaut syndrome

REACTIONS (4)
  - Femur fracture [Recovered/Resolved]
  - Epilepsy [Unknown]
  - Fall [Unknown]
  - Drug ineffective [Unknown]

NARRATIVE: CASE EVENT DATE: 20250410
